FAERS Safety Report 13010341 (Version 1)
Quarter: 2016Q4

REPORT INFORMATION
  Report Type: Spontaneous
  Country: US (occurrence: US)
  Receive Date: 20161207
  Receipt Date: 20161207
  Transmission Date: 20170207
  Serious: Yes (Death, Hospitalization, Disabling)
  Sender: FDA-Public Use
  Company Number: None

PATIENT
  Age: 73 Year
  Sex: Female
  Weight: 61 kg

DRUGS (1)
  1. OPDIVO [Suspect]
     Active Substance: NIVOLUMAB
     Indication: HODGKIN^S DISEASE
     Dosage: ?          OTHER FREQUENCY:ONCE;?
     Route: 041
     Dates: start: 20160804, end: 20160804

REACTIONS (6)
  - Generalised oedema [None]
  - Amyloidosis [None]
  - Haemodialysis [None]
  - Acute kidney injury [None]
  - Renal tubular necrosis [None]
  - Staphylococcal bacteraemia [None]

NARRATIVE: CASE EVENT DATE: 20160831
